FAERS Safety Report 22341827 (Version 1)
Quarter: 2023Q2

REPORT INFORMATION
  Report Type: Spontaneous
  Country: US (occurrence: US)
  Receive Date: 20230518
  Receipt Date: 20230518
  Transmission Date: 20230722
  Serious: No
  Sender: FDA-Public Use
  Company Number: US-GALDERMA-US2023005585

PATIENT

DRUGS (5)
  1. PROACTIV MD ADAPALENE ACNE TREATMENT [Suspect]
     Active Substance: ADAPALENE
     Indication: Acne
     Dosage: 1 DOSAGE FORM, BID, ONE IN THE MORNING AND ONE IN THE NIGHT, DIME SIZE
     Route: 061
     Dates: start: 202302, end: 202302
  2. Proactiv MD Ultra Gentle Cleanser [Concomitant]
     Indication: Acne
     Dosage: 1 DOSAGE FORM, BIW, DIME SIZE
     Route: 061
     Dates: start: 202302, end: 202302
  3. Proactiv MD Ultra Hydrating Moisturizer [Concomitant]
     Indication: Acne
     Dosage: 1 DOSAGE FORM, BIW, DIME SIZE
     Route: 061
     Dates: start: 202302, end: 202302
  4. Proactiv Post Acne Dark Mark Relief [Concomitant]
     Indication: Acne
     Dosage: 1 DOSAGE FORM, BIW, DIME SIZE
     Route: 061
     Dates: start: 202302, end: 202302
  5. Proactiv Post Acne Scar Gel [Concomitant]
     Indication: Acne
     Dosage: 1 DOSAGE FORM, BIW, DIME SIZE
     Route: 061
     Dates: start: 202302, end: 202302

REACTIONS (6)
  - Skin irritation [Recovered/Resolved]
  - Dry skin [Recovered/Resolved]
  - Skin tightness [Recovered/Resolved]
  - Dry eye [Recovered/Resolved]
  - Inappropriate schedule of product administration [Recovered/Resolved]
  - Overdose [Recovered/Resolved]

NARRATIVE: CASE EVENT DATE: 20230201
